FAERS Safety Report 6601204-X (Version None)
Quarter: 2010Q1

REPORT INFORMATION
  Report Type: 
  Country: None (occurrence: None)
  Receive Date: 20100225
  Receipt Date: 20100217
  Transmission Date: 20100710
  Serious: Yes (Other)
  Sender: FDA-Public Use
  Company Number: US-RB-001208-10

PATIENT
  Age: 26 Year
  Sex: Male

DRUGS (3)
  1. SUBOXONE [Suspect]
     Route: 060
     Dates: start: 20091001, end: 20100101
  2. SUBOXONE [Suspect]
     Dosage: TOOK A ONE TIME DOSE OF 16 MG
     Route: 060
     Dates: start: 20100101, end: 20100101
  3. SUBOXONE [Suspect]
     Route: 060
     Dates: start: 20100101

REACTIONS (5)
  - DRUG WITHDRAWAL SYNDROME [None]
  - FATIGUE [None]
  - LETHARGY [None]
  - MASS [None]
  - STRESS [None]
